FAERS Safety Report 6821065-3 (Version None)
Quarter: 2010Q3

REPORT INFORMATION
  Report Type: 
  Country: None (occurrence: None)
  Receive Date: 20100707
  Receipt Date: 20071212
  Transmission Date: 20110219
  Serious: No
  Sender: FDA-Public Use
  Company Number: US-PFIZER INC-2007102910

PATIENT
  Sex: Female
  Weight: 81.818 kg

DRUGS (8)
  1. ZOLOFT [Suspect]
     Indication: PANIC ATTACK
     Dates: start: 19990101
  2. ZOLOFT [Suspect]
     Indication: ANXIETY
  3. LIPITOR [Suspect]
     Indication: BLOOD CHOLESTEROL INCREASED
     Dates: start: 20060101
  4. KLONOPIN [Concomitant]
  5. TRICOR [Concomitant]
  6. HYDROCHLOROTHIAZIDE [Concomitant]
  7. LOVASTATIN [Concomitant]
  8. LORTAB [Concomitant]

REACTIONS (2)
  - BLOOD CHOLESTEROL INCREASED [None]
  - FIBROMYALGIA [None]
